FAERS Safety Report 8009165-6 (Version None)
Quarter: 2011Q4

REPORT INFORMATION
  Report Type: 
  Country: None (occurrence: None)
  Receive Date: 20111227
  Receipt Date: 20111221
  Transmission Date: 20120403
  Serious: Yes (Disabling)
  Sender: FDA-Public Use
  Company Number: PHHY2011TW111393

PATIENT
  Sex: Female
  Weight: 44 kg

DRUGS (2)
  1. ZOLEDRONIC [Suspect]
     Dosage: 4 MG PER DAY
     Route: 042
     Dates: start: 20100118, end: 20110927
  2. TERIPARATIDE [Concomitant]
     Indication: OSTEOPOROSIS
     Dosage: 0.003 MCG
     Dates: start: 20111108

REACTIONS (3)
  - MOUTH HAEMORRHAGE [None]
  - PAIN IN JAW [None]
  - OSTEONECROSIS OF JAW [None]
